FAERS Safety Report 5730154-6 (Version None)
Quarter: 2008Q2

REPORT INFORMATION
  Report Type: 
  Country: None (occurrence: None)
  Receive Date: 20080505
  Receipt Date: 20080505
  Transmission Date: 20081010
  Serious: Yes (Hospitalization)
  Sender: FDA-Public Use
  Company Number: None

PATIENT
  Age: 56 Year
  Sex: Female
  Weight: 103 kg

DRUGS (3)
  1. DOCETAXEL [Suspect]
     Indication: BREAST CANCER METASTATIC
     Dosage: 218 MG. EVERY 21 DAYS IV
     Route: 042
     Dates: start: 20080422
  2. BEVACIZUMAB [Suspect]
     Indication: BREAST CANCER METASTATIC
     Dosage: 1545 MG. EVERY 21 DAYS IV
     Route: 042
     Dates: start: 20080422
  3. TRAZTUZUMAB [Concomitant]

REACTIONS (7)
  - BACK PAIN [None]
  - DIARRHOEA [None]
  - DISORIENTATION [None]
  - HYPOXIA [None]
  - LEUKOCYTOSIS [None]
  - PNEUMONIA BACTERIAL [None]
  - VOMITING [None]
